FAERS Safety Report 14157890 (Version 3)
Quarter: 2017Q4

REPORT INFORMATION
  Report Type: Spontaneous
  Country: CN (occurrence: CN)
  Receive Date: 20171105
  Receipt Date: 20171215
  Transmission Date: 20180321
  Serious: Yes (Death, Other)
  Sender: FDA-Public Use
  Company Number: CN-CONCORDIA PHARMACEUTICALS INC.-E2B_00008463

PATIENT
  Age: 56 Year
  Sex: Female

DRUGS (22)
  1. PREDNISOLONE. [Suspect]
     Active Substance: PREDNISOLONE
     Indication: LYMPHOMA
     Dosage: 60MG PO QD D1-14; Q21D; CTOAP: DAY 1-14
     Route: 048
  2. VINCRISTINE [Suspect]
     Active Substance: VINCRISTINE
     Indication: B-CELL LYMPHOMA STAGE II
     Dosage: DOCPL: DAY 1
     Route: 042
  3. VINCRISTINE [Suspect]
     Active Substance: VINCRISTINE
     Indication: DISEASE PROGRESSION
     Dosage: CTOAP: D1
     Route: 042
  4. PREDNISOLONE. [Suspect]
     Active Substance: PREDNISOLONE
     Indication: B-CELL LYMPHOMA STAGE II
     Dosage: 60MG PO QD;DOCPL: DAY 1- DAY 5
     Route: 048
  5. PIRARUBICIN [Suspect]
     Active Substance: PIRARUBICIN
     Indication: B-CELL LYMPHOMA STAGE II
     Dosage: DOCPL: DAY 1-DAY 3
     Route: 042
  6. METHOTREXATE. [Suspect]
     Active Substance: METHOTREXATE
     Route: 037
  7. PIRARUBICIN [Suspect]
     Active Substance: PIRARUBICIN
     Indication: LYMPHOMA
     Dosage: DOCPL: DAY 1-DAY 3
     Route: 042
  8. PIRARUBICIN [Suspect]
     Active Substance: PIRARUBICIN
     Indication: DISEASE PROGRESSION
     Dosage: CTOAP: DAY 1-3
     Route: 042
  9. EPIRUBICIN [Concomitant]
     Active Substance: EPIRUBICIN
     Indication: NON-HODGKIN^S LYMPHOMA STAGE III
     Dosage: CHOP: DAY 1
     Route: 042
  10. LASPAR [Concomitant]
     Active Substance: ASPARAGINASE
     Indication: LYMPHOMA
     Dosage: 10000U QOD X 5;Q21D
     Route: 042
  11. VINCRISTINE [Suspect]
     Active Substance: VINCRISTINE
     Indication: LYMPHOMA
     Dosage: DOCPL: DAY 1
     Route: 042
  12. CYTARABINE. [Suspect]
     Active Substance: CYTARABINE
     Indication: DISEASE PROGRESSION
     Dosage: CTOAP: D1- D7
     Route: 042
  13. LASPAR [Concomitant]
     Active Substance: ASPARAGINASE
     Indication: B-CELL LYMPHOMA STAGE II
     Dosage: 10000U QOD X 5;Q21D; DOCPL
     Route: 042
  14. CYCLOPHOSPHAMIDE. [Suspect]
     Active Substance: CYCLOPHOSPHAMIDE
     Indication: B-CELL LYMPHOMA STAGE II
     Dosage: DOCPL: DAY 1
     Route: 042
  15. VINCRISTINE [Suspect]
     Active Substance: VINCRISTINE
     Indication: NON-HODGKIN^S LYMPHOMA STAGE III
     Dosage: CHOP: DAY 1
     Route: 042
  16. CYCLOPHOSPHAMIDE. [Suspect]
     Active Substance: CYCLOPHOSPHAMIDE
     Indication: LYMPHOMA
     Dosage: DOCPL: DAY 1
     Route: 042
  17. PREDNISOLONE. [Suspect]
     Active Substance: PREDNISOLONE
     Indication: DISEASE PROGRESSION
  18. CYCLOPHOSPHAMIDE. [Suspect]
     Active Substance: CYCLOPHOSPHAMIDE
     Indication: DISEASE PROGRESSION
     Dosage: CTOAP: DAY 1
     Route: 042
  19. SALINE [Concomitant]
     Active Substance: SODIUM CHLORIDE
     Indication: CENTRAL NERVOUS SYSTEM LEUKAEMIA
  20. PREDNISOLONE. [Suspect]
     Active Substance: PREDNISOLONE
     Indication: NON-HODGKIN^S LYMPHOMA STAGE III
     Dosage: 100 MG PO QD D1-5 Q21; CHOP
     Route: 048
  21. CYCLOPHOSPHAMIDE. [Suspect]
     Active Substance: CYCLOPHOSPHAMIDE
     Indication: NON-HODGKIN^S LYMPHOMA STAGE III
     Dosage: CHOP: DAY 1
     Route: 042
  22. DEXAMETHASONE. [Suspect]
     Active Substance: DEXAMETHASONE
     Indication: CENTRAL NERVOUS SYSTEM LEUKAEMIA

REACTIONS (4)
  - Decreased appetite [Unknown]
  - Asthenia [Unknown]
  - Bone marrow failure [Unknown]
  - Fatigue [Unknown]
